FAERS Safety Report 21984760 (Version 1)
Quarter: 2023Q1

REPORT INFORMATION
  Report Type: Spontaneous
  Country: US (occurrence: US)
  Receive Date: 20230213
  Receipt Date: 20230213
  Transmission Date: 20230418
  Serious: No
  Sender: FDA-Public Use
  Company Number: US-JNJFOC-20230211706

PATIENT
  Age: 23 Year
  Sex: Male

DRUGS (1)
  1. MENS ROGAINE EXTRA STRENGTH [Suspect]
     Active Substance: MINOXIDIL
     Indication: Alopecia
     Dosage: HALF A CUP FULL, BUT SOMETIMES ADDING A LITTLE MORE
     Route: 061
     Dates: start: 20221220

REACTIONS (1)
  - Overdose [Unknown]
